FAERS Safety Report 12662557 (Version 1)
Quarter: 2016Q3

REPORT INFORMATION
  Report Type: Report from Study
  Country: US (occurrence: US)
  Receive Date: 20160818
  Receipt Date: 20160818
  Transmission Date: 20161109
  Serious: Yes (Hospitalization)
  Sender: FDA-Public Use
  Company Number: US-AMGEN-USASL2016105709

PATIENT
  Age: 0 Year
  Sex: Male
  Weight: 1.96 kg

DRUGS (1)
  1. ENBREL [Suspect]
     Active Substance: ETANERCEPT
     Indication: EXPOSURE DURING PREGNANCY
     Dosage: UNK
     Route: 064

REACTIONS (2)
  - Oxygen saturation decreased [Unknown]
  - Hypoacusis [Unknown]

NARRATIVE: CASE EVENT DATE: 2016
